FAERS Safety Report 7742375-1 (Version None)
Quarter: 2011Q3

REPORT INFORMATION
  Report Type: 
  Country: None (occurrence: None)
  Receive Date: 20110912
  Receipt Date: 20110831
  Transmission Date: 20111222
  Serious: Yes (Hospitalization)
  Sender: FDA-Public Use
  Company Number: JP-EISAI INC-E7389-01426-SPO-JP

PATIENT
  Age: 68 Year
  Sex: Female
  Weight: 39 kg

DRUGS (2)
  1. DEXTROMETHORPHAN HYDROBROMIDE [Concomitant]
     Indication: COUGH
     Route: 048
     Dates: start: 20110819, end: 20110821
  2. HALAVEN [Suspect]
     Indication: RECURRENT CANCER
     Route: 041
     Dates: start: 20110819, end: 20110819

REACTIONS (1)
  - INTERSTITIAL LUNG DISEASE [None]
